FAERS Safety Report 14787870 (Version 3)
Quarter: 2018Q2

REPORT INFORMATION
  Report Type: Spontaneous
  Country: US (occurrence: US)
  Receive Date: 20180422
  Receipt Date: 20180611
  Transmission Date: 20180711
  Serious: Yes (Life-Threatening)
  Sender: FDA-Public Use
  Company Number: US-JNJFOC-20180403279

PATIENT
  Age: 12 Year
  Sex: Male
  Weight: 36 kg

DRUGS (3)
  1. REMICADE [Suspect]
     Active Substance: INFLIXIMAB
     Indication: CROHN^S DISEASE
     Dosage: 200 MG
     Route: 042
     Dates: start: 20180213
  2. REMICADE [Suspect]
     Active Substance: INFLIXIMAB
     Indication: CROHN^S DISEASE
     Dosage: 200 MG, 3RD DOSE
     Route: 042
     Dates: start: 20180329, end: 20180329
  3. MELATONIN [Concomitant]
     Active Substance: MELATONIN
     Indication: SLEEP DISORDER THERAPY
     Route: 065

REACTIONS (5)
  - Suspected product contamination [Unknown]
  - Anaphylactic reaction [Recovered/Resolved]
  - Drug specific antibody present [Unknown]
  - Drug level below therapeutic [Unknown]
  - Infusion related reaction [Recovered/Resolved]

NARRATIVE: CASE EVENT DATE: 20180329
